FAERS Safety Report 19679074 (Version 6)
Quarter: 2022Q4

REPORT INFORMATION
  Report Type: Spontaneous
  Country: TR (occurrence: TR)
  Receive Date: 20210810
  Receipt Date: 20221104
  Transmission Date: 20230112
  Serious: Yes (Death, Other)
  Sender: FDA-Public Use
  Company Number: TR-ASTELLAS-2021US023926

PATIENT
  Age: 81 Year
  Sex: Male

DRUGS (13)
  1. XTANDI [Suspect]
     Active Substance: ENZALUTAMIDE
     Indication: Hormone-dependent prostate cancer
     Dosage: 80 MG (2 DF (2 FILM COATED TABLETS)), ONCE DAILY
     Route: 050
     Dates: start: 20210627, end: 20210712
  2. XTANDI [Suspect]
     Active Substance: ENZALUTAMIDE
     Route: 050
     Dates: start: 20210713
  3. XTANDI [Suspect]
     Active Substance: ENZALUTAMIDE
     Route: 050
     Dates: start: 20210716
  4. XTANDI [Suspect]
     Active Substance: ENZALUTAMIDE
     Route: 050
  5. XTANDI [Suspect]
     Active Substance: ENZALUTAMIDE
     Route: 050
  6. XTANDI [Suspect]
     Active Substance: ENZALUTAMIDE
     Dosage: UNK UNK, UNKNOWN FREQ.
     Route: 050
     Dates: start: 20220201
  7. XTANDI [Suspect]
     Active Substance: ENZALUTAMIDE
     Indication: Hormone-dependent prostate cancer
     Dosage: UNK UNK, UNKNOWN FREQ.
     Route: 050
     Dates: start: 20211003, end: 20211013
  8. ELIGARD [Suspect]
     Active Substance: LEUPROLIDE ACETATE
     Indication: Hormone-dependent prostate cancer
     Dosage: 22.5 MG, EVERY 3 MONTHS (SINCE 9 MONTHS)
     Route: 065
  9. KEPPRA [Concomitant]
     Active Substance: LEVETIRACETAM
     Indication: Product used for unknown indication
     Dosage: (500 MG IN NOON, 750 MG IN THE MORNING (500+250MG))
     Route: 065
  10. KEPPRA [Concomitant]
     Active Substance: LEVETIRACETAM
     Route: 065
     Dates: start: 20210624
  11. COUMADIN [Concomitant]
     Active Substance: WARFARIN SODIUM
     Indication: Product used for unknown indication
     Route: 065
  12. METOPROLOL SUCCINATE [Concomitant]
     Active Substance: METOPROLOL SUCCINATE
     Indication: Product used for unknown indication
     Route: 065
  13. CASODEX [Concomitant]
     Active Substance: BICALUTAMIDE
     Indication: Prostate cancer
     Dosage: UNK UNK, UNKNOWN FREQ.
     Route: 065

REACTIONS (20)
  - Death [Fatal]
  - Arrhythmia [Recovered/Resolved]
  - Condition aggravated [Recovered/Resolved]
  - Malignant ascites [Unknown]
  - Malignant neoplasm progression [Unknown]
  - Dysphagia [Unknown]
  - Hyperhidrosis [Not Recovered/Not Resolved]
  - Erythema [Unknown]
  - Nausea [Unknown]
  - Retching [Unknown]
  - Fatigue [Unknown]
  - Faeces soft [Recovered/Resolved]
  - Peripheral swelling [Recovered/Resolved]
  - Hypoalbuminaemia [Recovered/Resolved]
  - Wrong technique in product usage process [Unknown]
  - Off label use [Unknown]
  - Underdose [Unknown]
  - Incorrect route of product administration [Unknown]
  - Off label use [Unknown]
  - Product availability issue [Unknown]

NARRATIVE: CASE EVENT DATE: 20210627
